FAERS Safety Report 22143791 (Version 2)
Quarter: 2023Q1

REPORT INFORMATION
  Report Type: Spontaneous
  Country: IT (occurrence: IT)
  Receive Date: 20230327
  Receipt Date: 20230331
  Transmission Date: 20230418
  Serious: Yes (Other)
  Sender: FDA-Public Use
  Company Number: IT-BoehringerIngelheim-2023-BI-226947

PATIENT
  Sex: Male
  Weight: 57 kg

DRUGS (3)
  1. NINTEDANIB [Suspect]
     Active Substance: NINTEDANIB
     Indication: Interstitial lung disease
     Dates: start: 202105
  2. NINTEDANIB [Suspect]
     Active Substance: NINTEDANIB
     Indication: Systemic scleroderma
  3. ILOPROST [Concomitant]
     Active Substance: ILOPROST
     Indication: Skin ulcer
     Route: 042

REACTIONS (1)
  - Lung adenocarcinoma [Not Recovered/Not Resolved]
